FAERS Safety Report 6159670-2 (Version None)
Quarter: 2009Q2

REPORT INFORMATION
  Report Type: 
  Country: None (occurrence: None)
  Receive Date: 20090415
  Receipt Date: 20090331
  Transmission Date: 20091009
  Serious: Yes (Other)
  Sender: FDA-Public Use
  Company Number: CERZ-1000589

PATIENT
  Sex: Female

DRUGS (2)
  1. CEREZYME [Suspect]
     Indication: GAUCHER'S DISEASE
     Dosage: 45 U/KG; Q2W; INTRAVENOUS; 30 U/KG, Q2W; INTRAVENOUS
     Route: 042
     Dates: start: 20060201, end: 20070101
  2. CEREZYME [Suspect]
     Indication: GAUCHER'S DISEASE
     Dosage: 45 U/KG; Q2W; INTRAVENOUS; 30 U/KG, Q2W; INTRAVENOUS
     Route: 042
     Dates: start: 20070101

REACTIONS (2)
  - BONE FISTULA [None]
  - INFECTION [None]
